FAERS Safety Report 6700901-5 (Version None)
Quarter: 2010Q2

REPORT INFORMATION
  Report Type: 
  Country: None (occurrence: None)
  Receive Date: 20100428
  Receipt Date: 20100413
  Transmission Date: 20101027
  Serious: Yes (Other)
  Sender: FDA-Public Use
  Company Number: IT-JNJFOC-20100305239

PATIENT
  Sex: Male

DRUGS (4)
  1. INTELENCE [Suspect]
     Indication: ACUTE HIV INFECTION
     Route: 048
  2. TRUVADA [Concomitant]
     Indication: ACUTE HIV INFECTION
     Route: 048
  3. ISENTRESS [Concomitant]
     Indication: ACUTE HIV INFECTION
     Route: 048
  4. BISOPROLOL [Concomitant]
     Indication: HYPERTENSION
     Route: 048

REACTIONS (1)
  - MYOPATHY [None]
